FAERS Safety Report 12652713 (Version 4)
Quarter: 2016Q3

REPORT INFORMATION
  Report Type: Spontaneous
  Country: US (occurrence: US)
  Receive Date: 20160815
  Receipt Date: 20160915
  Transmission Date: 20161109
  Serious: No
  Sender: FDA-Public Use
  Company Number: US-PFIZER INC-2016381136

PATIENT
  Age: 53 Year
  Sex: Female
  Weight: 102 kg

DRUGS (6)
  1. CYTOMEL [Suspect]
     Active Substance: LIOTHYRONINE SODIUM
     Indication: HYPOTHYROIDISM
     Dosage: 25 UG, 3X/DAY
     Route: 048
  2. MAGNESIUM TAURATE [Concomitant]
     Indication: MIGRAINE PROPHYLAXIS
     Dosage: 375 MG, 2X/DAY, IN THE MORNING AND AT NIGHT
  3. MAGNESIUM TAURATE [Concomitant]
     Indication: BLOOD MAGNESIUM DECREASED
  4. LIOTHYRONINE SODIUM. [Suspect]
     Active Substance: LIOTHYRONINE SODIUM
     Indication: HYPOTHYROIDISM
     Dosage: 25 UG, 3X/DAY
     Route: 048
     Dates: end: 20160809
  5. VITAMIN C [Concomitant]
     Active Substance: ASCORBIC ACID
     Indication: IMMUNE ENHANCEMENT THERAPY
     Dosage: 1000 MG, 2X/DAY, IN THE MORNING AND AT NIGHT
  6. LEVOXYL [Concomitant]
     Active Substance: LEVOTHYROXINE SODIUM
     Dosage: UNK

REACTIONS (6)
  - Product physical issue [Unknown]
  - Abdominal discomfort [Unknown]
  - Product taste abnormal [Unknown]
  - Migraine with aura [Recovered/Resolved]
  - Nausea [Recovered/Resolved]
  - Drug hypersensitivity [Unknown]

NARRATIVE: CASE EVENT DATE: 20160805
